FAERS Safety Report 6700660-6 (Version None)
Quarter: 2010Q2

REPORT INFORMATION
  Report Type: 
  Country: None (occurrence: None)
  Receive Date: 20100428
  Receipt Date: 20100416
  Transmission Date: 20101027
  Serious: Yes (Hospitalization, Other)
  Sender: FDA-Public Use
  Company Number: PHHY2010MX24689

PATIENT
  Sex: Male
  Weight: 63 kg

DRUGS (1)
  1. CGP 57148B T35717+ [Suspect]
     Indication: CHRONIC MYELOID LEUKAEMIA
     Dosage: 400 MG, UNK
     Route: 048
     Dates: start: 20080904, end: 20100327

REACTIONS (4)
  - CREATININE RENAL CLEARANCE DECREASED [None]
  - DERMATOSIS [None]
  - GENERALISED OEDEMA [None]
  - ICHTHYOSIS ACQUIRED [None]
